FAERS Safety Report 8814570 (Version 2)
Quarter: 2013Q2

REPORT INFORMATION
  Report Type: Report from Study
  Country: US (occurrence: US)
  Receive Date: 20120928
  Receipt Date: 20130517
  Transmission Date: 20140414
  Serious: Yes (Hospitalization, Other)
  Sender: FDA-Public Use
  Company Number: US-ASTELLAS-2012US008168

PATIENT
  Age: 57 Year
  Sex: Female

DRUGS (5)
  1. TACROLIMUS CAPSULES [Suspect]
     Indication: PROPHYLAXIS AGAINST GRAFT VERSUS HOST DISEASE
     Dosage: UNK
     Route: 065
     Dates: start: 201111, end: 20120208
  2. TACROLIMUS CAPSULES [Suspect]
     Dosage: TAPER DOSE
     Route: 065
     Dates: start: 20120209, end: 20120402
  3. TACROLIMUS CAPSULES [Suspect]
     Dosage: INCREASED DOSE
     Route: 065
     Dates: start: 20120402
  4. TACROLIMUS CAPSULES [Suspect]
     Dosage: UNK
     Route: 065
     Dates: start: 201207, end: 201209
  5. METHOTREXATE [Concomitant]
     Indication: PROPHYLAXIS AGAINST GRAFT VERSUS HOST DISEASE
     Dosage: UNK
     Route: 065
     Dates: start: 201111

REACTIONS (16)
  - Off label use [Unknown]
  - Renal failure [Unknown]
  - Skin ulcer [Recovering/Resolving]
  - Hypothyroidism [Unknown]
  - Graft versus host disease [Unknown]
  - Bacteraemia [Unknown]
  - Convulsion [Unknown]
  - Fungal abscess central nervous system [Not Recovered/Not Resolved]
  - Anaemia [Unknown]
  - Thrombocytopenia [Unknown]
  - Hypertension [Unknown]
  - Oedema peripheral [Recovered/Resolved]
  - Laceration [Unknown]
  - Depression [Unknown]
  - Upper respiratory tract infection [Unknown]
  - Urinary tract infection [Recovered/Resolved]
